FAERS Safety Report 7431822-0 (Version None)
Quarter: 2011Q2

REPORT INFORMATION
  Report Type: 
  Country: None (occurrence: None)
  Receive Date: 20110420
  Receipt Date: 20110420
  Transmission Date: 20111010
  Serious: Yes (Hospitalization)
  Sender: FDA-Public Use
  Company Number: None

PATIENT
  Age: 80 Year
  Sex: Female
  Weight: 55.3388 kg

DRUGS (13)
  1. ZOMETA [Concomitant]
  2. NEBULIZER [Concomitant]
  3. KLOR-CON [Concomitant]
  4. VITAMIN D [Concomitant]
  5. AVENO LOTION [Concomitant]
  6. CARNATION INSTANT BREAKFAST DRINK [Concomitant]
  7. TYLENOL ES [Concomitant]
  8. ANASTROZOLE (ARIMIDEX) [Suspect]
     Indication: BREAST CANCER METASTATIC
     Dosage: 1MG OD ORAL
     Route: 048
     Dates: start: 20101220
  9. MEGNESIUM OXIDE [Concomitant]
  10. COUMADIN [Concomitant]
  11. METOPROLOL SUCCINATE [Concomitant]
  12. BUSPIRONE HCL [Concomitant]
  13. LASIX [Concomitant]

REACTIONS (7)
  - RECTAL HAEMORRHAGE [None]
  - INTERNATIONAL NORMALISED RATIO INCREASED [None]
  - LOWER GASTROINTESTINAL HAEMORRHAGE [None]
  - DIVERTICULUM INTESTINAL HAEMORRHAGIC [None]
  - ASTHENIA [None]
  - HYPOTENSION [None]
  - HAEMORRHOIDAL HAEMORRHAGE [None]
